FAERS Safety Report 23510897 (Version 1)
Quarter: 2024Q1

REPORT INFORMATION
  Report Type: Spontaneous
  Country: DE (occurrence: DE)
  Receive Date: 20240212
  Receipt Date: 20240212
  Transmission Date: 20240410
  Serious: Yes (Other)
  Sender: FDA-Public Use
  Company Number: None

PATIENT
  Age: 51 Year
  Sex: Male
  Weight: 118 kg

DRUGS (26)
  1. RAMIPRIL [Suspect]
     Active Substance: RAMIPRIL
     Indication: Hypertension
  2. SILDENAFIL [Suspect]
     Active Substance: SILDENAFIL
     Indication: Product used for unknown indication
  3. BROMAZEPAM [Suspect]
     Active Substance: BROMAZEPAM
     Indication: Sedation
     Dosage: 3MG IF NECESSARY FOR SEDATION/ANXIETY
  4. BROMAZEPAM [Suspect]
     Active Substance: BROMAZEPAM
     Indication: Anxiety
  5. NEBIVOLOL [Suspect]
     Active Substance: NEBIVOLOL
     Indication: Hypertension
     Dosage: 2.5MG MORNING AND NIGHT
  6. CANDESARTAN [Suspect]
     Active Substance: CANDESARTAN
     Indication: Hypertension
     Dosage: MORNING 8MG, AFTERNOON 4MG
  7. SEROQUEL [Suspect]
     Active Substance: QUETIAPINE FUMARATE
     Indication: Insomnia
     Dosage: 25-50MG IF NECESSARY TO CALM DOWN
  8. SEROQUEL [Suspect]
     Active Substance: QUETIAPINE FUMARATE
     Indication: Sedation
     Dosage: 100MG AT BEDTIME FOR SLEEP
  9. CARIPRAZINE [Suspect]
     Active Substance: CARIPRAZINE
     Indication: Product used for unknown indication
  10. RISPERDAL [Suspect]
     Active Substance: RISPERIDONE
     Indication: Psychotic disorder
     Dosage: MORNING 4MG, NIGHT 5MG
  11. RISPERDAL [Suspect]
     Active Substance: RISPERIDONE
  12. TAVOR (LORAZEPAM) [Suspect]
     Active Substance: LORAZEPAM
     Indication: Anxiety
     Dosage: 1MG IF NECESSARY FOR SEDATION/ANXIETY
  13. TAVOR (LORAZEPAM) [Suspect]
     Active Substance: LORAZEPAM
     Indication: Sedation
  14. ZELDOX [Suspect]
     Active Substance: ZIPRASIDONE
     Indication: Product used for unknown indication
  15. ZYPREXA [Suspect]
     Active Substance: OLANZAPINE
     Indication: Product used for unknown indication
  16. RABEPRAZOLE [Suspect]
     Active Substance: RABEPRAZOLE
     Indication: Gastric pH increased
     Dosage: MORNING 20MG
  17. MELATONIN [Suspect]
     Active Substance: MELATONIN
     Indication: Product used for unknown indication
     Dosage: DOSAGE FORM UNKNOWN
  18. ABILIFY [Suspect]
     Active Substance: ARIPIPRAZOLE
     Indication: Product used for unknown indication
  19. NAPROXEN [Suspect]
     Active Substance: NAPROXEN
     Indication: Anxiety
     Dosage: 500MG IF NECESSARY FOR KNEE PAIN
  20. NAPROXEN [Suspect]
     Active Substance: NAPROXEN
     Indication: Arthralgia
  21. PROPRANOLOL [Suspect]
     Active Substance: PROPRANOLOL HYDROCHLORIDE
     Indication: Tremor
  22. FLUPENTIXOL [Suspect]
     Active Substance: FLUPENTIXOL
     Indication: Psychotic disorder
     Dosage: MORNING: 5MG? EVENING: 6 MG? NIGHT: 2MG
  23. CHLORPROTHIXENE [Suspect]
     Active Substance: CHLORPROTHIXENE
     Indication: Insomnia
     Dosage: 100MG AT BEDTIME FOR SLEEP
  24. PROMETHAZINE HYDROCHLORIDE [Suspect]
     Active Substance: PROMETHAZINE HYDROCHLORIDE
     Indication: Product used for unknown indication
  25. PROMETHAZINE HYDROCHLORIDE [Suspect]
     Active Substance: PROMETHAZINE HYDROCHLORIDE
  26. CLOZAPINE [Suspect]
     Active Substance: CLOZAPINE
     Indication: Product used for unknown indication

REACTIONS (11)
  - Suicidal ideation [Unknown]
  - Somnolence [Unknown]
  - Drug interaction [Unknown]
  - Parkinsonism [Unknown]
  - Flatulence [Unknown]
  - Blood pressure increased [Unknown]
  - Tremor [Unknown]
  - Dizziness [Unknown]
  - Condition aggravated [Unknown]
  - Impaired work ability [Unknown]
  - Brain fog [Unknown]
